FAERS Safety Report 9656455 (Version 1)
Quarter: 2013Q4

REPORT INFORMATION
  Report Type: Spontaneous
  Country: US (occurrence: None)
  Receive Date: 20131029
  Receipt Date: 20131029
  Transmission Date: 20140711
  Serious: Yes (Death)
  Sender: FDA-Public Use
  Company Number: None

PATIENT
  Age: 63 Year
  Sex: Male
  Weight: 92.4 kg

DRUGS (1)
  1. OCTAGAM [Suspect]
     Indication: ENCEPHALITIS
     Route: 042
     Dates: start: 20130817, end: 20130820

REACTIONS (1)
  - Blood glucose increased [None]
